FAERS Safety Report 25528319 (Version 1)
Quarter: 2025Q3

REPORT INFORMATION
  Report Type: Spontaneous
  Country: US (occurrence: US)
  Receive Date: 20250708
  Receipt Date: 20250708
  Transmission Date: 20251020
  Serious: Yes (Other)
  Sender: COOPERSURGICAL
  Company Number: US-COOPERSURGICAL, INC.-2025CPS005220

PATIENT
  Age: 40 Year
  Sex: Female
  Weight: 63.492 kg

DRUGS (2)
  1. PARAGARD T 380A [Suspect]
     Active Substance: COPPER
     Indication: Contraception
     Route: 015
     Dates: start: 20110125, end: 20201120
  2. CITALOPRAM [Concomitant]
     Active Substance: CITALOPRAM
     Dates: start: 200801

REACTIONS (26)
  - Tubo-ovarian abscess [Recovered/Resolved]
  - Colostomy [Recovered/Resolved]
  - Colectomy [Recovered/Resolved]
  - Appendicectomy [Recovered/Resolved]
  - Salpingo-oophorectomy bilateral [Recovered/Resolved]
  - Hysterectomy [Recovered/Resolved]
  - Reproductive complication associated with device [Not Recovered/Not Resolved]
  - Infertility female [Not Recovered/Not Resolved]
  - Colostomy closure [Recovered/Resolved]
  - Large intestinal obstruction [Unknown]
  - Pelvic inflammatory disease [Recovered/Resolved]
  - Colitis [Not Recovered/Not Resolved]
  - Thrombocytosis [Not Recovered/Not Resolved]
  - Emotional distress [Not Recovered/Not Resolved]
  - Glucose tolerance impaired [Not Recovered/Not Resolved]
  - Sexual dysfunction [Not Recovered/Not Resolved]
  - Depression [Not Recovered/Not Resolved]
  - Anxiety [Not Recovered/Not Resolved]
  - Premature menopause [Not Recovered/Not Resolved]
  - Scar [Not Recovered/Not Resolved]
  - Stress [Not Recovered/Not Resolved]
  - Hypokalaemia [Recovered/Resolved]
  - Procedural complication [Unknown]
  - Pelvic pain [Recovered/Resolved]
  - Pain [Unknown]
  - Unevaluable event [Unknown]

NARRATIVE: CASE EVENT DATE: 20200820
